FAERS Safety Report 14335633 (Version 1)
Quarter: 2017Q4

REPORT INFORMATION
  Report Type: Spontaneous
  Country: US (occurrence: US)
  Receive Date: 20171229
  Receipt Date: 20171229
  Transmission Date: 20180321
  Serious: No
  Sender: FDA-Public Use
  Company Number: US-TEVA-2017-US-830951

PATIENT
  Age: 75 Year
  Sex: Male

DRUGS (1)
  1. TAMSULOSIN HYDROCHLORIDE. [Suspect]
     Active Substance: TAMSULOSIN HYDROCHLORIDE
     Indication: URINE FLOW DECREASED
     Dosage: STOP DATE APPROXIMATELY 06-OCT-2017 OR 08-OCT-2017.
     Route: 048
     Dates: start: 20171004

REACTIONS (3)
  - Rash [Recovered/Resolved]
  - Pruritus [Recovered/Resolved]
  - Thermal burn [Recovered/Resolved]

NARRATIVE: CASE EVENT DATE: 201710
